FAERS Safety Report 9631341 (Version 1)
Quarter: 2013Q4

REPORT INFORMATION
  Report Type: Spontaneous
  Country: GB (occurrence: None)
  Receive Date: 20131015
  Receipt Date: 20131015
  Transmission Date: 20140711
  Serious: Yes (Other)
  Sender: FDA-Public Use
  Company Number: GB-MACLEODS PHARMA-000154

PATIENT
  Age: 83 Year
  Sex: Female

DRUGS (2)
  1. DONEPEZIL [Suspect]
     Indication: DEMENTIA
     Dosage: 1.0 DAYS
     Route: 048
     Dates: start: 20111101, end: 20130416
  2. SYMBICORT (SYMBICORT) [Concomitant]

REACTIONS (1)
  - Neutropenia [None]
